FAERS Safety Report 15657633 (Version 1)
Quarter: 2018Q4

REPORT INFORMATION
  Report Type: Spontaneous
  Country: AU (occurrence: AU)
  Receive Date: 20181126
  Receipt Date: 20181126
  Transmission Date: 20190205
  Serious: Yes (Hospitalization, Other)
  Sender: FDA-Public Use
  Company Number: AU-ENDO PHARMACEUTICALS INC-2018-043046

PATIENT
  Age: 51 Year
  Sex: Female

DRUGS (4)
  1. TRANYLCYPROMINE [Suspect]
     Active Substance: TRANYLCYPROMINE
     Indication: BIPOLAR DISORDER
     Dosage: 50 MG, OD (EVERY MORNING)
     Route: 065
  2. TYRAMINE [Suspect]
     Active Substance: TYRAMINE
     Indication: PRODUCT USED FOR UNKNOWN INDICATION
     Dosage: UNK UNKNOWN, UNKNOWN
     Route: 065
  3. THYROXINE [Concomitant]
     Active Substance: LEVOTHYROXINE
     Indication: HYPOTHYROIDISM
     Dosage: 100 ?G, OD (EVERY MORNING)
     Route: 065
  4. SODIUM VALPROATE [Concomitant]
     Active Substance: VALPROATE SODIUM
     Indication: BIPOLAR DISORDER
     Dosage: 2500 MG (1500 MG MORNING AND 1000 MG AT NIGHT), DAILY
     Route: 065

REACTIONS (4)
  - Cardiomyopathy [Recovered/Resolved]
  - Acute myocardial infarction [Unknown]
  - Hypertensive crisis [Recovered/Resolved]
  - Sinus bradycardia [Recovered/Resolved]

NARRATIVE: CASE EVENT DATE: 201712
